FAERS Safety Report 7378251-6 (Version None)
Quarter: 2011Q1

REPORT INFORMATION
  Report Type: 
  Country: None (occurrence: None)
  Receive Date: 20110328
  Receipt Date: 20110322
  Transmission Date: 20110831
  Serious: Yes (Hospitalization)
  Sender: FDA-Public Use
  Company Number: B0707885A

PATIENT
  Sex: Female

DRUGS (2)
  1. AUGMENTIN [Suspect]
     Indication: BRONCHITIS
     Route: 048
     Dates: start: 20101201, end: 20101201
  2. ASPIRIN [Concomitant]
     Dosage: 1G PER DAY
     Route: 048
     Dates: start: 20101201, end: 20101201

REACTIONS (6)
  - URTICARIA [None]
  - ANGIOEDEMA [None]
  - DYSPNOEA [None]
  - ANAPHYLACTIC REACTION [None]
  - MALAISE [None]
  - BLOOD PRESSURE DECREASED [None]
